FAERS Safety Report 16768267 (Version 1)
Quarter: 2019Q3

REPORT INFORMATION
  Report Type: Spontaneous
  Country: US (occurrence: US)
  Receive Date: 20190903
  Receipt Date: 20190903
  Transmission Date: 20191005
  Serious: Yes (Life-Threatening, Hospitalization, Other)
  Sender: FDA-Public Use
  Company Number: US-MYLANLABS-2019M1082358

PATIENT
  Age: 81 Year
  Sex: Female

DRUGS (7)
  1. ATROPINE. [Suspect]
     Active Substance: ATROPINE
     Indication: BRADYCARDIA
     Route: 065
  2. GLYCOPYRROLATE                     /00196201/ [Suspect]
     Active Substance: GLYCOPYRRONIUM
     Indication: BRADYCARDIA
     Route: 065
  3. ATROPINE. [Suspect]
     Active Substance: ATROPINE
     Indication: HYPOTENSION
  4. EPINEPHRINE. [Suspect]
     Active Substance: EPINEPHRINE
     Indication: BRADYCARDIA
     Route: 065
  5. EPINEPHRINE. [Suspect]
     Active Substance: EPINEPHRINE
     Indication: HYPOTENSION
  6. PROPOFOL. [Suspect]
     Active Substance: PROPOFOL
     Indication: INDUCTION OF ANAESTHESIA
     Route: 042
  7. FENTANYL. [Suspect]
     Active Substance: FENTANYL
     Indication: INDUCTION OF ANAESTHESIA
     Route: 042

REACTIONS (6)
  - Drug ineffective [Unknown]
  - Atrioventricular block complete [Recovering/Resolving]
  - Bundle branch block left [Recovering/Resolving]
  - Hypotension [Recovering/Resolving]
  - Stress cardiomyopathy [Recovering/Resolving]
  - Bradycardia [Recovering/Resolving]
